FAERS Safety Report 4895952-X (Version None)
Quarter: 2006Q1

REPORT INFORMATION
  Report Type: 
  Country: None (occurrence: None)
  Receive Date: 20060125
  Receipt Date: 20060112
  Transmission Date: 20060701
  Serious: Yes (Death, Hospitalization)
  Sender: FDA-Public Use
  Company Number: 2005161924

PATIENT
  Age: 79 Year
  Sex: Male
  Weight: 48 kg

DRUGS (10)
  1. IRINOTECAN HCL [Suspect]
     Indication: GASTRIC CANCER RECURRENT
     Dosage: SEE IMAGE
     Route: 042
     Dates: start: 20050303, end: 20050622
  2. IRINOTECAN HCL [Suspect]
     Indication: GASTRIC CANCER RECURRENT
     Dosage: SEE IMAGE
     Route: 042
     Dates: start: 20050706, end: 20051109
  3. TEGAFUR/GIMERACIL/OTERACIL POTASSIUM (TEGAFUR/GIMERACIL/OTERACIL POTAS [Suspect]
     Indication: GASTRIC CANCER RECURRENT
     Dosage: SEE IMAGE
     Route: 048
     Dates: start: 20040628, end: 20041222
  4. TEGAFUR/GIMERACIL/OTERACIL POTASSIUM (TEGAFUR/GIMERACIL/OTERACIL POTAS [Suspect]
     Indication: GASTRIC CANCER RECURRENT
     Dosage: SEE IMAGE
     Route: 048
     Dates: start: 20050914, end: 20051109
  5. SODIUM CHLORIDE 0.9% [Concomitant]
  6. DEXAMETHASONE SODIUM PHOSPHATE [Concomitant]
  7. ALLEGRA [Concomitant]
  8. LIVOSTIN [Concomitant]
  9. CELESTAMINE TAB [Concomitant]
  10. MUCOSOLVAN (AMBROXOL HYDROCHLORIDE) [Concomitant]

REACTIONS (1)
  - INTERSTITIAL LUNG DISEASE [None]
